FAERS Safety Report 10185568 (Version 11)
Quarter: 2014Q3

REPORT INFORMATION
  Report Type: Spontaneous
  Country: HU (occurrence: HU)
  Receive Date: 20140521
  Receipt Date: 20140905
  Transmission Date: 20150326
  Serious: Yes (Death, Hospitalization, Other)
  Sender: FDA-Public Use
  Company Number: HU-PFIZER INC-2014134585

PATIENT
  Age: 58 Year
  Sex: Male

DRUGS (5)
  1. SUTENT [Suspect]
     Active Substance: SUNITINIB MALATE
     Dosage: 50 MG, 1X/DAY
     Route: 048
     Dates: start: 20140505, end: 20140509
  2. SUTENT [Suspect]
     Active Substance: SUNITINIB MALATE
     Dosage: 50 MG, 1X/DAY 7TH. CYCLE
     Route: 048
     Dates: start: 20140529, end: 20140621
  3. SUTENT [Suspect]
     Active Substance: SUNITINIB MALATE
     Dosage: 50 MG, DAILY 8TH.CYCLE
     Route: 048
     Dates: start: 20140706
  4. SYNCUMAR [Suspect]
     Active Substance: ACENOCOUMAROL
     Dosage: 1ST DAY 1 TABLET, SECOND DAY 1.5 TABLET
     Route: 048
     Dates: start: 201307, end: 20140509
  5. SUTENT [Suspect]
     Active Substance: SUNITINIB MALATE
     Indication: RENAL CANCER METASTATIC
     Dosage: 50 MG, 1X/DAY
     Route: 048
     Dates: start: 20130828

REACTIONS (9)
  - Faeces discoloured [Recovered/Resolved]
  - Anaemia [Recovered/Resolved]
  - Back pain [Not Recovered/Not Resolved]
  - Death [Fatal]
  - Gastric ulcer [Recovering/Resolving]
  - Gastric ulcer haemorrhage [Unknown]
  - Perihepatic discomfort [Recovering/Resolving]
  - International normalised ratio increased [Recovered/Resolved]
  - Gastrooesophageal reflux disease [Unknown]

NARRATIVE: CASE EVENT DATE: 201405
